FAERS Safety Report 9003440 (Version 2)
Quarter: 2013Q1

REPORT INFORMATION
  Report Type: Report from Study
  Country: US (occurrence: US)
  Receive Date: 20130108
  Receipt Date: 20130122
  Transmission Date: 20140127
  Serious: Yes (Hospitalization, Other)
  Sender: FDA-Public Use
  Company Number: US-ABBOTT-13P-163-1030332-00

PATIENT
  Age: 60 None
  Sex: Male
  Weight: 126.67 kg

DRUGS (4)
  1. HUMIRA [Suspect]
     Indication: RHEUMATOID ARTHRITIS
     Route: 058
     Dates: start: 200205
  2. HUMIRA [Suspect]
  3. PREDNISONE [Concomitant]
     Indication: RHEUMATOID ARTHRITIS
  4. INSULIN [Concomitant]
     Indication: DIABETES MELLITUS

REACTIONS (17)
  - Erythema [Recovered/Resolved]
  - Cystitis [Recovered/Resolved]
  - Sinusitis [Recovered/Resolved]
  - Skin infection [Recovered/Resolved]
  - Fall [Recovered/Resolved]
  - Tibia fracture [Recovered/Resolved]
  - Foot fracture [Recovered/Resolved]
  - Wound [Recovered/Resolved]
  - Osteomyelitis [Recovered/Resolved]
  - Fibula fracture [Recovered/Resolved]
  - Asthenia [Not Recovered/Not Resolved]
  - Impaired healing [Recovered/Resolved]
  - Arthritis [Not Recovered/Not Resolved]
  - Arthralgia [Not Recovered/Not Resolved]
  - Joint stiffness [Not Recovered/Not Resolved]
  - Arthritis [Not Recovered/Not Resolved]
  - Phantom pain [Not Recovered/Not Resolved]
